FAERS Safety Report 11179813 (Version 2)
Quarter: 2015Q2

REPORT INFORMATION
  Report Type: Report from Study
  Country: US (occurrence: US)
  Receive Date: 20150611
  Receipt Date: 20150612
  Transmission Date: 20150821
  Serious: Yes (Other)
  Sender: FDA-Public Use
  Company Number: US-ROCHE-1591461

PATIENT
  Age: 33 Year
  Sex: Female

DRUGS (3)
  1. EPIPEN [Concomitant]
     Active Substance: EPINEPHRINE
  2. XOLAIR [Suspect]
     Active Substance: OMALIZUMAB
     Indication: ASTHMA
     Route: 065
     Dates: start: 20150520
  3. XOLAIR [Suspect]
     Active Substance: OMALIZUMAB
     Route: 065
     Dates: start: 20150603

REACTIONS (5)
  - Product quality issue [Unknown]
  - Pruritus generalised [Recovered/Resolved]
  - Pharyngeal disorder [Recovered/Resolved]
  - Urticaria [Recovered/Resolved]
  - Pruritus [Recovered/Resolved]

NARRATIVE: CASE EVENT DATE: 20150603
